FAERS Safety Report 5792368-9 (Version None)
Quarter: 2008Q2

REPORT INFORMATION
  Report Type: 
  Country: None (occurrence: None)
  Receive Date: 20080626
  Receipt Date: 20080416
  Transmission Date: 20081010
  Serious: No
  Sender: FDA-Public Use
  Company Number: US-ASTRAZENECA-2008UW06401

PATIENT
  Age: 14 Year
  Sex: Male
  Weight: 88.5 kg

DRUGS (5)
  1. PULMICORT FLEXHALER [Suspect]
     Indication: ASTHMA
     Dosage: 180 MCG
     Route: 055
     Dates: start: 20080301
  2. OMNICEF [Concomitant]
  3. RYNATAN [Concomitant]
  4. ALBUTEROL [Concomitant]
  5. LEVAQUIN [Concomitant]

REACTIONS (2)
  - ASTHMA [None]
  - CHRONIC SINUSITIS [None]
